FAERS Safety Report 8455844-6 (Version None)
Quarter: 2012Q2

REPORT INFORMATION
  Report Type: 
  Country: None (occurrence: None)
  Receive Date: 20120621
  Receipt Date: 20120612
  Transmission Date: 20120825
  Serious: Yes (Other)
  Sender: FDA-Public Use
  Company Number: US-ASTRAZENECA-2012SE14390

PATIENT
  Age: 64 Year
  Sex: Female

DRUGS (3)
  1. METOPROLOL SUCCINATE [Suspect]
     Route: 048
  2. NEXIUM [Suspect]
     Route: 048
  3. UNSPECIFIED ANESTHETIC DRUG [Suspect]

REACTIONS (6)
  - DRUG INTOLERANCE [None]
  - DRUG INEFFECTIVE [None]
  - ABDOMINAL DISCOMFORT [None]
  - FEELING ABNORMAL [None]
  - CATARACT [None]
  - ADVERSE DRUG REACTION [None]
